FAERS Safety Report 9392025 (Version 1)
Quarter: 2013Q3

REPORT INFORMATION
  Report Type: Spontaneous
  Country: US (occurrence: None)
  Receive Date: 20130705
  Receipt Date: 20130705
  Transmission Date: 20140515
  Serious: Yes (Hospitalization)
  Sender: FDA-Public Use
  Company Number: AU-022455

PATIENT
  Age: 78 Year
  Sex: Female
  Weight: 66.7 kg

DRUGS (9)
  1. CHLORAMBUCIL [Suspect]
     Indication: CHRONIC LYMPHOCYTIC LEUKAEMIA
     Dosage: 53 MG DAILY (D1 AD D15) (52 MILLIGRAM), ORAL
     Route: 048
     Dates: start: 20110308
  2. ALLOPURINOL [Concomitant]
  3. NEXIUM (ESOMEPRAZOLE) [Concomitant]
  4. METHYLDOPA (METHYDOPA) [Concomitant]
  5. ENALAPRIL/HCT (ENALAPRIL AND DIURETICS) [Concomitant]
  6. METOPROLOL (METOPROLOL) [Concomitant]
  7. LERCANDIDIPINE (LERCANIDIPINE) [Concomitant]
  8. ASPIRIN (ACETYLASLICYLIC ACID) [Concomitant]
  9. ATORVASTATIN (ATROVASTATIN) [Concomitant]

REACTIONS (4)
  - Neutropenia [None]
  - Nausea [None]
  - Hyponatraemia [None]
  - Vomiting [None]
